FAERS Safety Report 8979650 (Version 2)
Quarter: 2013Q1

REPORT INFORMATION
  Report Type: Spontaneous
  Country: CA (occurrence: CA)
  Receive Date: 20121221
  Receipt Date: 20130107
  Transmission Date: 20140127
  Serious: Yes (Death, Other)
  Sender: FDA-Public Use
  Company Number: PHHY2011CA05564

PATIENT
  Age: 68 Year
  Sex: Male

DRUGS (2)
  1. ZOMETA [Suspect]
     Indication: PROSTATE CANCER
     Dosage: 4 MG, EVERY 4 WEEKS
     Route: 042
     Dates: start: 20101229
  2. ZOMETA [Suspect]
     Dosage: 4 MG, EVERY 8 WEEKS
     Route: 042
     Dates: end: 20121107

REACTIONS (8)
  - Death [Fatal]
  - Terminal state [Unknown]
  - Tooth disorder [Not Recovered/Not Resolved]
  - Weight decreased [Unknown]
  - Blood alkaline phosphatase increased [Unknown]
  - Influenza [Unknown]
  - Mobility decreased [Unknown]
  - Fatigue [Unknown]
